FAERS Safety Report 6072452-5 (Version None)
Quarter: 2009Q1

REPORT INFORMATION
  Report Type: 
  Country: None (occurrence: None)
  Receive Date: 20090210
  Receipt Date: 20090116
  Transmission Date: 20090719
  Serious: Yes (Hospitalization)
  Sender: FDA-Public Use
  Company Number: CH-PFIZER INC-2008156568

PATIENT

DRUGS (5)
  1. SORTIS [Suspect]
     Indication: HYPERCHOLESTEROLAEMIA
     Route: 048
     Dates: end: 20081122
  2. SORTIS [Suspect]
  3. ARICEPT [Suspect]
     Indication: DEMENTIA ALZHEIMER'S TYPE
     Route: 048
     Dates: start: 20070901, end: 20081122
  4. COVERSUM [Concomitant]
     Indication: HYPERTENSION
     Dosage: 4 MG, 1X/DAY
  5. INSULIN [Concomitant]
     Indication: TYPE 2 DIABETES MELLITUS

REACTIONS (3)
  - DIARRHOEA [None]
  - JAUNDICE [None]
  - LIVER INJURY [None]
